FAERS Safety Report 6054990-4 (Version None)
Quarter: 2009Q1

REPORT INFORMATION
  Report Type: 
  Country: None (occurrence: None)
  Receive Date: 20090122
  Receipt Date: 20090116
  Transmission Date: 20090719
  Serious: Yes (Hospitalization, Other)
  Sender: FDA-Public Use
  Company Number: 2008SP015511

PATIENT
  Age: 47 Year
  Sex: Male
  Weight: 85 kg

DRUGS (6)
  1. PEG-INTRON [Suspect]
     Indication: HEPATITIS C
     Dosage: 120 MCG;QW;
     Dates: start: 20080211, end: 20080428
  2. REBETOL [Suspect]
     Indication: HEPATITIS C
     Dosage: 1000 MG, QD; 400 MG; ONCE;
     Dates: start: 20080211, end: 20080501
  3. REBETOL [Suspect]
     Indication: HEPATITIS C
     Dosage: 1000 MG, QD; 400 MG; ONCE;
     Dates: start: 20080502, end: 20080502
  4. TELAPREVIR (INVESTIGATIONAL DRUG) [Suspect]
     Indication: HEPATITIS C
     Dosage: 1125 MG, Q12H, 1225 MG, ONCE;
     Dates: start: 20080211, end: 20080425
  5. TELAPREVIR (INVESTIGATIONAL DRUG) [Suspect]
     Indication: HEPATITIS C
     Dosage: 1125 MG, Q12H, 1225 MG, ONCE;
     Dates: start: 20080427, end: 20080501
  6. TELAPREVIR (INVESTIGATIONAL DRUG) [Suspect]
     Indication: HEPATITIS C
     Dosage: 1125 MG, Q12H, 1225 MG, ONCE;
     Dates: start: 20080502, end: 20080502

REACTIONS (5)
  - BONE FISSURE [None]
  - HAEMOGLOBIN DECREASED [None]
  - HYPERTHERMIA [None]
  - OSTEITIS [None]
  - PSEUDOMONAS INFECTION [None]
